FAERS Safety Report 9823288 (Version 1)
Quarter: 2014Q1

REPORT INFORMATION
  Report Type: Report from Study
  Country: BR (occurrence: BR)
  Receive Date: 20140116
  Receipt Date: 20140116
  Transmission Date: 20141002
  Serious: Yes (Other)
  Sender: FDA-Public Use
  Company Number: PHHY2014BR004935

PATIENT
  Sex: Female

DRUGS (8)
  1. DIOVAN AMLO FIX [Suspect]
     Indication: HYPERTENSION
     Dosage: UNK (160/5MG), QD
     Route: 048
     Dates: end: 201312
  2. DIOVAN [Suspect]
     Indication: HYPERTENSION
     Dosage: UNK (80MG), QD
     Route: 048
  3. DIOVAN [Suspect]
     Dosage: 3 DF, DAILY
  4. GALANTAMINE [Concomitant]
     Indication: BLOOD CHOLESTEROL ABNORMAL
     Dosage: UNK (10MG), UNK
     Dates: start: 2013
  5. MAXXI D3 [Concomitant]
     Indication: HYPOVITAMINOSIS
     Dosage: UNK (200MG), UNK
  6. ZAMADOL [Concomitant]
     Indication: PAIN
     Dosage: UNK (100MG), UNK
  7. OMEPRAZOLE [Concomitant]
     Indication: GASTRIC DISORDER
     Dosage: UNK (20MG), UNK
  8. BROMAZEPAM [Concomitant]
     Indication: INSOMNIA
     Dosage: UNK (3MG), UNK

REACTIONS (10)
  - Rheumatoid arthritis [Recovering/Resolving]
  - Fluid retention [Recovering/Resolving]
  - Urinary tract infection [Recovering/Resolving]
  - Laziness [Recovering/Resolving]
  - Apathy [Recovering/Resolving]
  - Pain [Recovering/Resolving]
  - Depression [Unknown]
  - Somnolence [Recovering/Resolving]
  - Oedema peripheral [Recovering/Resolving]
  - Blood pressure increased [Recovering/Resolving]
